FAERS Safety Report 4945003-3 (Version None)
Quarter: 2006Q1

REPORT INFORMATION
  Report Type: 
  Country: None (occurrence: None)
  Receive Date: 20060117
  Receipt Date: 20050617
  Transmission Date: 20060701
  Serious: Yes (Hospitalization)
  Sender: FDA-Public Use
  Company Number: A03200501848

PATIENT
  Age: 71 Year
  Sex: Male
  Weight: 78.0187 kg

DRUGS (2)
  1. PLAVIX [Suspect]
     Indication: STENT PLACEMENT
     Dosage: 75 MG QD - ORAL
     Route: 048
     Dates: start: 20050509, end: 20050529
  2. ACETYLSALICYLIC ACID SRT [Concomitant]

REACTIONS (2)
  - PYREXIA [None]
  - TREMOR [None]
